FAERS Safety Report 20479890 (Version 1)
Quarter: 2022Q1

REPORT INFORMATION
  Report Type: Spontaneous
  Country: IT (occurrence: IT)
  Receive Date: 20220216
  Receipt Date: 20220216
  Transmission Date: 20220423
  Serious: Yes (Other)
  Sender: FDA-Public Use
  Company Number: IT-MYLANLABS-2022M1012487

PATIENT
  Age: 19 Year
  Sex: Male

DRUGS (4)
  1. PACLITAXEL [Suspect]
     Active Substance: PACLITAXEL
     Indication: Nasal sinus cancer
     Dosage: UNK, Q3W, THREE TIMES
     Route: 065
     Dates: start: 2019
  2. FLUOROURACIL [Suspect]
     Active Substance: FLUOROURACIL
     Indication: Nasal sinus cancer
     Dosage: UNK, THREE TIMES
     Route: 065
     Dates: start: 2019
  3. CISPLATIN [Suspect]
     Active Substance: CISPLATIN
     Indication: Nasal sinus cancer
     Dosage: UNK, Q3W, THREE TIMES
     Route: 065
     Dates: start: 2019
  4. CISPLATIN [Suspect]
     Active Substance: CISPLATIN
     Dosage: 220 MILLIGRAM/SQ. METER
     Route: 065
     Dates: start: 2019

REACTIONS (1)
  - Drug ineffective [Unknown]

NARRATIVE: CASE EVENT DATE: 20190101
